FAERS Safety Report 13738679 (Version 4)
Quarter: 2023Q4

REPORT INFORMATION
  Report Type: Report from Study
  Country: US (occurrence: US)
  Receive Date: 20170710
  Receipt Date: 20231109
  Transmission Date: 20240109
  Serious: Yes (Other)
  Sender: FDA-Public Use
  Company Number: US-SAOL THERAPEUTICS-0700641524

PATIENT
  Age: 63 Year
  Sex: Female
  Weight: 72.562 kg

DRUGS (19)
  1. BACLOFEN [Suspect]
     Active Substance: BACLOFEN
     Indication: Pain
     Dosage: 349.85 ?G, \DAY
     Route: 037
     Dates: start: 20140421, end: 20140505
  2. BACLOFEN [Suspect]
     Active Substance: BACLOFEN
     Dosage: 315.03 ?G, \DAY
     Route: 037
     Dates: start: 20140505
  3. BACLOFEN [Suspect]
     Active Substance: BACLOFEN
     Dosage: 300.06 ?G, \DAY
     Route: 037
     Dates: start: 20170608, end: 20170622
  4. BACLOFEN [Suspect]
     Active Substance: BACLOFEN
     Dosage: 330.11 ?G, \DAY
     Route: 037
     Dates: start: 20170622
  5. BACLOFEN [Suspect]
     Active Substance: BACLOFEN
     Dosage: 270 ?G, \DAY
     Route: 037
     Dates: start: 20170719, end: 20170816
  6. BACLOFEN [Suspect]
     Active Substance: BACLOFEN
     Dosage: 34.00 ?G, \DAY
     Route: 037
     Dates: start: 20170816
  7. DILAUDID [Suspect]
     Active Substance: HYDROMORPHONE HYDROCHLORIDE
     Dosage: 5.2478 MG, \DAY
     Route: 037
     Dates: start: 20140421, end: 20140505
  8. DILAUDID [Suspect]
     Active Substance: HYDROMORPHONE HYDROCHLORIDE
     Dosage: 4.725 MG, \DAY
     Route: 037
     Dates: start: 20140505
  9. DILAUDID [Suspect]
     Active Substance: HYDROMORPHONE HYDROCHLORIDE
     Dosage: 4.501 MG, \DAY
     Route: 037
     Dates: start: 20170608, end: 20170622
  10. DILAUDID [Suspect]
     Active Substance: HYDROMORPHONE HYDROCHLORIDE
     Dosage: 4.9517 MG, \DAY
     Route: 037
     Dates: start: 20170622, end: 20170719
  11. DILAUDID [Suspect]
     Active Substance: HYDROMORPHONE HYDROCHLORIDE
     Dosage: 4.05 MG, \DAY
     Route: 037
     Dates: start: 20170719, end: 20170823
  12. DILAUDID [Suspect]
     Active Substance: HYDROMORPHONE HYDROCHLORIDE
     Dosage: 0.510 MG, \DAY
     Route: 037
     Dates: start: 20170823
  13. CLONIDINE [Suspect]
     Active Substance: CLONIDINE
     Dosage: 279.88 ?G, \DAY
     Route: 037
     Dates: start: 20140421, end: 20140505
  14. CLONIDINE [Suspect]
     Active Substance: CLONIDINE
     Dosage: 252.02 ?G, \DAY
     Route: 037
     Dates: start: 20140505
  15. CLONIDINE [Suspect]
     Active Substance: CLONIDINE
     Dosage: 360.08 ?G, \DAY
     Route: 037
     Dates: start: 20170608, end: 20170622
  16. CLONIDINE [Suspect]
     Active Substance: CLONIDINE
     Dosage: 396.14 ?G, \DAY
     Route: 037
     Dates: start: 20170622
  17. CLONIDINE [Suspect]
     Active Substance: CLONIDINE
     Dosage: 396.14 ?G, \DAY
     Route: 037
     Dates: start: 20170719, end: 20170719
  18. CLONIDINE [Suspect]
     Active Substance: CLONIDINE
     Dosage: 324 ?G, \DAY
     Route: 037
     Dates: start: 20170719, end: 20170823
  19. CLONIDINE [Suspect]
     Active Substance: CLONIDINE
     Dosage: 40.80 ?G, \DAY
     Route: 037
     Dates: start: 20170823

REACTIONS (8)
  - Drug ineffective for unapproved indication [Recovered/Resolved]
  - Pain [Recovered/Resolved]
  - Muscle spasticity [Recovered/Resolved]
  - Hyperaesthesia [Recovered/Resolved]
  - Implant site pain [Recovered/Resolved]
  - Device failure [Recovered/Resolved]
  - Device occlusion [Unknown]
  - Device physical property issue [Recovered/Resolved]

NARRATIVE: CASE EVENT DATE: 20140505
